FAERS Safety Report 8842191 (Version 1)
Quarter: 2012Q4

REPORT INFORMATION
  Report Type: 
  Country: NL (occurrence: NL)
  Receive Date: 20121016
  Receipt Date: 20121016
  Transmission Date: 20130627
  Serious: Yes (Death, Hospitalization)
  Sender: FDA-Public Use
  Company Number: PHHY2012NL089125

PATIENT
  Age: 42 Year
  Sex: Female

DRUGS (4)
  1. ZOMETA [Suspect]
     Indication: BREAST CANCER METASTATIC
     Dosage: 4 mg, per 100ml once per 28 days
     Route: 042
  2. ZOMETA [Suspect]
     Dosage: 4 mg per 100ml once per 28 days
     Route: 042
     Dates: start: 20120228
  3. ZOMETA [Suspect]
     Dosage: 4 mg per 100ml once per 28 days
     Route: 042
     Dates: start: 20120827
  4. ZOMETA [Suspect]
     Dosage: 4 mg per 100ml once per 28 days
     Route: 042
     Dates: start: 20121008

REACTIONS (2)
  - Death [Fatal]
  - Chest discomfort [Not Recovered/Not Resolved]
